FAERS Safety Report 23498493 (Version 1)
Quarter: 2024Q1

REPORT INFORMATION
  Report Type: Report from Study
  Country: US (occurrence: US)
  Receive Date: 20240208
  Receipt Date: 20240208
  Transmission Date: 20240409
  Serious: No
  Sender: FDA-Public Use
  Company Number: US-AGIOS-2401US03633

PATIENT
  Sex: Female

DRUGS (1)
  1. MITAPIVAT [Suspect]
     Active Substance: MITAPIVAT
     Indication: Pyruvate kinase deficiency anaemia
     Dosage: 50 MILLIGRAM, BID
     Route: 048

REACTIONS (5)
  - Fatigue [Unknown]
  - Lip discolouration [Unknown]
  - Laboratory test abnormal [Unknown]
  - Loss of libido [Unknown]
  - Vulvovaginal dryness [Unknown]
